FAERS Safety Report 8924122 (Version 2)
Quarter: 2013Q1

REPORT INFORMATION
  Report Type: Report from Study
  Country: GB (occurrence: GB)
  Receive Date: 20121126
  Receipt Date: 20130114
  Transmission Date: 20140127
  Serious: Yes (Other)
  Sender: FDA-Public Use
  Company Number: GB-ASTRAZENECA-2012SE87946

PATIENT
  Age: 16449 Day
  Sex: Male

DRUGS (27)
  1. VANDETANIB [Suspect]
     Indication: THYROID CANCER
     Route: 048
     Dates: start: 20111214
  2. VANDETANIB [Suspect]
     Indication: THYROID CANCER
     Route: 048
     Dates: start: 20120112, end: 20120309
  3. VANDETANIB [Suspect]
     Indication: THYROID CANCER
     Route: 048
     Dates: start: 20120314
  4. GABAPENTIN [Concomitant]
     Indication: NEURALGIA
     Route: 048
     Dates: end: 20120110
  5. GABAPENTIN [Concomitant]
     Indication: NEURALGIA
     Route: 048
     Dates: start: 20120111, end: 20120111
  6. GABAPENTIN [Concomitant]
     Indication: NEURALGIA
     Route: 048
     Dates: start: 20120112, end: 20120112
  7. GABAPENTIN [Concomitant]
     Indication: NEURALGIA
     Route: 048
     Dates: start: 20120113
  8. SANDOCAL-CALCIUM LACTATE, GLUCONATE, CALCIUM CARBONATE [Concomitant]
     Indication: HYPOCALCAEMIA
     Route: 048
     Dates: start: 20120104
  9. ALFACALCIDOL [Concomitant]
     Indication: HYPOCALCAEMIA
     Route: 048
  10. LANSOPRAZOLE [Concomitant]
     Indication: PROPHYLAXIS AGAINST GASTROINTESTINAL ULCER
     Route: 048
  11. LEVOTHYROXINE [Concomitant]
     Indication: THYROIDECTOMY
     Route: 048
     Dates: end: 20120105
  12. LEVOTHYROXINE [Concomitant]
     Indication: THYROIDECTOMY
     Route: 048
     Dates: start: 20120106, end: 20120125
  13. LEVOTHYROXINE [Concomitant]
     Indication: THYROIDECTOMY
     Route: 048
     Dates: start: 20120126, end: 20120209
  14. LEVOTHYROXINE [Concomitant]
     Indication: THYROIDECTOMY
     Route: 048
     Dates: start: 20120210, end: 20121018
  15. LEVOTHYROXINE [Concomitant]
     Indication: THYROIDECTOMY
     Route: 048
     Dates: start: 20121019
  16. FUSIDIC ACID [Concomitant]
     Indication: DERMATITIS ACNEIFORM
     Route: 003
     Dates: start: 20120104
  17. AMLODIPINE [Concomitant]
     Indication: HYPERTENSION
     Route: 048
     Dates: start: 20120213, end: 20120223
  18. AMLODIPINE [Concomitant]
     Indication: HYPERTENSION
     Route: 048
     Dates: start: 20120224
  19. BISOPROLOL [Concomitant]
     Indication: HYPERTENSION
     Route: 048
     Dates: start: 20120314
  20. DIPROBASE (LIQUID PARRAFIN, SOFT WHITE PARRAFIN, CETOMACRAGOL AND CETO [Concomitant]
     Indication: DERMATITIS ACNEIFORM
     Route: 003
     Dates: start: 20120329
  21. DIPROBASE (LIQUID PARRAFIN, SOFT WHITE PARRAFIN, CETOMACRAGOL AND CETO [Concomitant]
     Indication: RASH MACULO-PAPULAR
     Route: 003
     Dates: start: 20120329
  22. DIPROBASE (LIQUID PARRAFIN, SOFT WHITE PARRAFIN, CETOMACRAGOL AND CETO [Concomitant]
     Indication: PHOTOSENSITIVITY REACTION
     Route: 003
     Dates: start: 20120329
  23. LYMECYCLINE [Concomitant]
     Indication: DERMATITIS ACNEIFORM
     Route: 048
     Dates: start: 20120419, end: 20120514
  24. LYMECYCLINE [Concomitant]
     Indication: DERMATITIS ACNEIFORM
     Route: 048
     Dates: start: 20120525
  25. LOPERAMIDE [Concomitant]
     Indication: DIARRHOEA
     Route: 048
  26. PARACETAMOL [Concomitant]
     Indication: DERMATITIS ACNEIFORM
     Route: 048
     Dates: start: 20120126
  27. CHLORPHENAMIN E (NON DROWSY) [Concomitant]
     Indication: DERMATITIS ACNEIFORM
     Route: 048
     Dates: start: 20120126

REACTIONS (1)
  - Angina pectoris [Recovered/Resolved]
